FAERS Safety Report 21244935 (Version 2)
Quarter: 2022Q3

REPORT INFORMATION
  Report Type: Spontaneous
  Country: US (occurrence: None)
  Receive Date: 20220823
  Receipt Date: 20220905
  Transmission Date: 20221027
  Serious: Yes (Other)
  Sender: FDA-Public Use
  Company Number: US-ROCHE-3141296

PATIENT
  Age: 70 Year
  Sex: Female
  Weight: 61.290 kg

DRUGS (3)
  1. ACTEMRA [Suspect]
     Active Substance: TOCILIZUMAB
     Indication: Giant cell arteritis
     Route: 058
  2. ACTEMRA [Suspect]
     Active Substance: TOCILIZUMAB
  3. PREDNISONE [Concomitant]
     Active Substance: PREDNISONE
     Indication: Giant cell arteritis
     Dosage: TAPERING DOSE; WILL GO DOWN TO 2.5 MG 15-JUL-2022
     Route: 048
     Dates: start: 202112

REACTIONS (8)
  - Accidental exposure to product [Unknown]
  - Underdose [Unknown]
  - Product storage error [Unknown]
  - Drug delivery system malfunction [Unknown]
  - Device defective [Unknown]
  - Needle issue [Unknown]
  - Thrombosis [Recovered/Resolved]
  - Memory impairment [Unknown]

NARRATIVE: CASE EVENT DATE: 20220301
